FAERS Safety Report 8175766-8 (Version None)
Quarter: 2012Q1

REPORT INFORMATION
  Report Type: 
  Country: None (occurrence: None)
  Receive Date: 20120228
  Receipt Date: 20120228
  Transmission Date: 20120608
  Serious: No
  Sender: FDA-Public Use
  Company Number: None

PATIENT
  Age: 60 Year
  Sex: Male
  Weight: 99.7913 kg

DRUGS (2)
  1. OMEPRAZOLE [Suspect]
     Indication: BARRETT'S OESOPHAGUS
     Dates: start: 20110705, end: 20110708
  2. PANTOPRAZOLE [Suspect]
     Indication: BARRETT'S OESOPHAGUS
     Dates: start: 20110711, end: 20110712

REACTIONS (3)
  - NAUSEA [None]
  - CHEST PAIN [None]
  - BURNING SENSATION [None]
